FAERS Safety Report 5806234-3 (Version None)
Quarter: 2008Q3

REPORT INFORMATION
  Report Type: 
  Country: None (occurrence: None)
  Receive Date: 20080710
  Receipt Date: 20080706
  Transmission Date: 20090109
  Serious: Yes (Hospitalization)
  Sender: FDA-Public Use
  Company Number: GB-ROCHE-574334

PATIENT
  Sex: Female
  Weight: 82 kg

DRUGS (2)
  1. ORLISTAT [Suspect]
     Indication: OBESITY
     Route: 048
     Dates: start: 20080603, end: 20080702
  2. IRON TABLETS [Concomitant]
     Indication: IRON DEFICIENCY
     Route: 048

REACTIONS (2)
  - RECTAL HAEMORRHAGE [None]
  - UTERINE LEIOMYOMA [None]
